FAERS Safety Report 9192065 (Version 1)
Quarter: 2013Q1

REPORT INFORMATION
  Report Type: Spontaneous
  Country: ZA (occurrence: None)
  Receive Date: 20130325
  Receipt Date: 20130325
  Transmission Date: 20140127
  Serious: Yes (Hospitalization)
  Sender: FDA-Public Use
  Company Number: SYM-2013-02006

PATIENT
  Age: 20 Year
  Sex: 0

DRUGS (1)
  1. WELLBUTRIN XL [Suspect]

REACTIONS (3)
  - Overdose [None]
  - Hallucination [None]
  - Convulsion [None]
